FAERS Safety Report 17752070 (Version 2)
Quarter: 2020Q3

REPORT INFORMATION
  Report Type: Spontaneous
  Country: US (occurrence: US)
  Receive Date: 20200506
  Receipt Date: 20200707
  Transmission Date: 20201102
  Serious: No
  Sender: FDA-Public Use
  Company Number: US-TEVA-2020-US-1231574

PATIENT
  Sex: Female

DRUGS (10)
  1. SYNTHROID [Concomitant]
     Active Substance: LEVOTHYROXINE SODIUM
  2. COPAXONE [Suspect]
     Active Substance: GLATIRAMER ACETATE
     Indication: MULTIPLE SCLEROSIS
     Dosage: 40 MG THRICE A WEEK
     Route: 058
     Dates: start: 20151014
  3. DULOXETINE. [Concomitant]
     Active Substance: DULOXETINE
  4. BACLOFEN. [Concomitant]
     Active Substance: BACLOFEN
  5. LOSARTAN POT [Concomitant]
     Active Substance: LOSARTAN POTASSIUM
  6. VITAMIN B12 [Concomitant]
     Active Substance: CYANOCOBALAMIN
  7. VITAMIN D3 [Concomitant]
     Active Substance: CHOLECALCIFEROL
     Dosage: 1000 UNIT
  8. ADVAIR DISKU AER [Concomitant]
     Dosage: AER 250/50
  9. FLONASE ALGY [Concomitant]
     Dosage: SPRAY
  10. OXYBUTYNIN. [Concomitant]
     Active Substance: OXYBUTYNIN CHLORIDE

REACTIONS (7)
  - Muscular weakness [Not Recovered/Not Resolved]
  - Hypoaesthesia [Not Recovered/Not Resolved]
  - Dysarthria [Not Recovered/Not Resolved]
  - Cognitive disorder [Not Recovered/Not Resolved]
  - Depression [Not Recovered/Not Resolved]
  - Product dose omission issue [Unknown]
  - Fatigue [Not Recovered/Not Resolved]
